FAERS Safety Report 7376710-3 (Version None)
Quarter: 2011Q1

REPORT INFORMATION
  Report Type: 
  Country: None (occurrence: None)
  Receive Date: 20110325
  Receipt Date: 20110311
  Transmission Date: 20110831
  Serious: Yes (Hospitalization, Other)
  Sender: FDA-Public Use
  Company Number: JP-JNJFOC-20110300059

PATIENT
  Sex: Female
  Weight: 64 kg

DRUGS (21)
  1. REMICADE [Suspect]
     Dosage: TOTAL OF 15 INFUSIONS
     Route: 042
  2. REMICADE [Suspect]
     Route: 042
  3. REMICADE [Suspect]
     Route: 042
  4. REMICADE [Suspect]
     Route: 042
  5. REMICADE [Suspect]
     Indication: CROHN'S DISEASE
     Dosage: TOTAL OF 15 INFUSIONS
     Route: 042
  6. REMICADE [Suspect]
     Dosage: TOTAL OF 15 INFUSIONS
     Route: 042
  7. REMICADE [Suspect]
     Route: 042
  8. REMICADE [Suspect]
     Route: 042
  9. REMICADE [Suspect]
     Route: 042
  10. REMICADE [Suspect]
     Route: 042
  11. REMICADE [Suspect]
     Dosage: TOTAL OF 15 INFUSIONS
     Route: 042
  12. REMICADE [Suspect]
     Route: 042
  13. REMICADE [Suspect]
     Dosage: TOTAL OF 15 INFUSIONS
     Route: 042
  14. LOXONIN [Concomitant]
     Route: 048
  15. FERROUS CITRATE [Concomitant]
     Route: 048
  16. REMICADE [Suspect]
     Dosage: TOTAL OF 15 INFUSIONS
     Route: 042
  17. REMICADE [Suspect]
     Dosage: TOTAL OF 15 INFUSIONS
     Route: 042
  18. REMICADE [Suspect]
     Route: 042
  19. PENTASA [Concomitant]
     Route: 048
  20. LAC-B [Concomitant]
     Route: 048
  21. REMICADE [Suspect]
     Dosage: 15TH INFUSION
     Route: 042

REACTIONS (10)
  - ERYTHEMA [None]
  - THERAPEUTIC RESPONSE DECREASED [None]
  - UTERINE LEIOMYOMA [None]
  - BLOOD ALBUMIN DECREASED [None]
  - CROHN'S DISEASE [None]
  - PERINEAL INFECTION [None]
  - RASH [None]
  - OVARIAN CYST [None]
  - PERIPROCTITIS [None]
  - ANAL INFECTION [None]
